FAERS Safety Report 8285710-0 (Version None)
Quarter: 2012Q2

REPORT INFORMATION
  Report Type: 
  Country: None (occurrence: None)
  Receive Date: 20120413
  Receipt Date: 20120404
  Transmission Date: 20120825
  Serious: Yes (Other)
  Sender: FDA-Public Use
  Company Number: RU-ROCHE-1033678

PATIENT
  Age: 84 Year
  Sex: Female

DRUGS (2)
  1. RIVASTIGMINE [Suspect]
     Indication: PRODUCT USED FOR UNKNOWN INDICATION
     Route: 062
  2. LUCENTIS [Suspect]
     Indication: RETINAL VASCULAR THROMBOSIS
     Route: 050
     Dates: start: 20110711

REACTIONS (4)
  - MENTAL IMPAIRMENT [None]
  - INSOMNIA [None]
  - DRUG INEFFECTIVE [None]
  - FALL [None]
